FAERS Safety Report 24344264 (Version 1)
Quarter: 2024Q3

REPORT INFORMATION
  Report Type: Spontaneous
  Country: US (occurrence: US)
  Receive Date: 20240920
  Receipt Date: 20240920
  Transmission Date: 20241017
  Serious: Yes (Other)
  Sender: GRIFOLS
  Company Number: US-IGSA-BIG0030653

PATIENT
  Sex: Male

DRUGS (1)
  1. FACTOR IX COMPLEX [Suspect]
     Active Substance: FACTOR IX COMPLEX
     Indication: Factor IX deficiency
     Dosage: UNK UNKNOWN, UNKNOWN

REACTIONS (2)
  - Anaphylactic reaction [Unknown]
  - Haemorrhage [Unknown]
